FAERS Safety Report 9402081 (Version 1)
Quarter: 2013Q3

REPORT INFORMATION
  Report Type: Report from Study
  Country: US (occurrence: US)
  Receive Date: 20130716
  Receipt Date: 20130716
  Transmission Date: 20140515
  Serious: No
  Sender: FDA-Public Use
  Company Number: PHEH2013US014086

PATIENT
  Sex: Male

DRUGS (5)
  1. TASIGNA [Suspect]
     Dosage: 300 MG, BID
     Route: 048
     Dates: start: 20130531
  2. SUCRALFATE [Concomitant]
  3. MULTI-VIT [Concomitant]
  4. BABY ASPIRIN [Concomitant]
  5. POTASSIUM GLUCONATE [Concomitant]

REACTIONS (5)
  - Liver disorder [Unknown]
  - Fatigue [Unknown]
  - Gynaecomastia [Unknown]
  - Breast pain [Unknown]
  - Muscle spasms [Unknown]
